FAERS Safety Report 7952524-8 (Version None)
Quarter: 2011Q4

REPORT INFORMATION
  Report Type: 
  Country: None (occurrence: None)
  Receive Date: 20111201
  Receipt Date: 20111128
  Transmission Date: 20120403
  Serious: Yes (Hospitalization)
  Sender: FDA-Public Use
  Company Number: FR-PFIZER INC-2011289054

PATIENT
  Age: 37 Year
  Sex: Female

DRUGS (5)
  1. RISPERDAL [Suspect]
     Indication: BIPOLAR DISORDER
     Dosage: 1 MG, 1X/DAY
     Route: 048
  2. EFFEXOR XR [Suspect]
     Indication: BIPOLAR DISORDER
     Dosage: 150 MG, 2X/DAY
     Route: 048
  3. EFFEXOR XR [Suspect]
     Dosage: 37.5 MG, 1X/DAY
     Route: 048
  4. LITHIUM CARBONATE [Suspect]
     Indication: BIPOLAR DISORDER
     Dosage: 500 MG, 2X/DAY
     Route: 048
  5. GREEN TEA EXTRACT [Suspect]
     Dosage: UNK
     Route: 048
     Dates: start: 20110628, end: 20110630

REACTIONS (3)
  - CONVULSION [None]
  - ATRIOVENTRICULAR BLOCK [None]
  - BRADYCARDIA [None]
